FAERS Safety Report 5657338-X (Version None)
Quarter: 2008Q1

REPORT INFORMATION
  Report Type: 
  Country: None (occurrence: None)
  Receive Date: 20080310
  Receipt Date: 20080227
  Transmission Date: 20080703
  Serious: Yes (Hospitalization, Other)
  Sender: FDA-Public Use
  Company Number: US-PFIZER INC-2008019284

PATIENT
  Sex: Male
  Weight: 100 kg

DRUGS (13)
  1. CHANTIX [Suspect]
     Indication: SMOKING CESSATION THERAPY
     Dates: start: 20071101, end: 20080201
  2. SPIRIVA [Concomitant]
  3. MICARDIS [Concomitant]
  4. THEOPHYLLINE [Concomitant]
  5. PREVACID [Concomitant]
  6. ADVAIR DISKUS 100/50 [Concomitant]
  7. PLAVIX [Concomitant]
  8. VYTORIN [Concomitant]
  9. METOPROLOL TARTRATE [Concomitant]
  10. NITROGLYCERIN [Concomitant]
  11. LYRICA [Concomitant]
  12. PROPOXYPHENE NAPSYLATE W/ ACETAMINOPHEN [Concomitant]
  13. ACETAMINOPHEN [Concomitant]

REACTIONS (5)
  - CARDIAC DISORDER [None]
  - INTENTIONAL SELF-INJURY [None]
  - STRESS [None]
  - SUICIDAL IDEATION [None]
  - WRONG TECHNIQUE IN DRUG USAGE PROCESS [None]
